FAERS Safety Report 25676259 (Version 1)
Quarter: 2025Q3

REPORT INFORMATION
  Report Type: Spontaneous
  Country: US (occurrence: None)
  Receive Date: 20250812
  Receipt Date: 20250812
  Transmission Date: 20251021
  Serious: Yes (unspecified)
  Sender: FDA-CTU
  Company Number: None

PATIENT
  Age: 49 Year
  Sex: Female
  Weight: 63.5 kg

DRUGS (4)
  1. TUBERSOL [Suspect]
     Active Substance: TUBERCULIN PURIFIED PROTEIN DERIVATIVE
  2. VITAMIN E [Concomitant]
     Active Substance: .ALPHA.-TOCOPHEROL
  3. FISH OIL [Concomitant]
     Active Substance: FISH OIL
  4. CURCUMIN [Concomitant]
     Active Substance: CURCUMIN

REACTIONS (5)
  - Pyrexia [None]
  - Lethargy [None]
  - Breast pain [None]
  - Back pain [None]
  - Decreased appetite [None]

NARRATIVE: CASE EVENT DATE: 20250430
